FAERS Safety Report 11190226 (Version 1)
Quarter: 2015Q2

REPORT INFORMATION
  Report Type: Spontaneous
  Country: US (occurrence: US)
  Receive Date: 20150615
  Receipt Date: 20150615
  Transmission Date: 20150821
  Serious: No
  Sender: FDA-Public Use
  Company Number: US-ASTRAZENECA-2015SE51092

PATIENT
  Age: 23018 Day
  Sex: Female

DRUGS (11)
  1. ROSUVASTATIN [Suspect]
     Active Substance: ROSUVASTATIN
     Route: 048
  2. PERCOCET [Concomitant]
     Active Substance: ACETAMINOPHEN\OXYCODONE HYDROCHLORIDE
     Indication: PAIN
     Dosage: ONE TO TWO TABLET EVERY 4 TO 6 HOURS AS NEEDED
     Route: 048
  3. HYZAAR [Concomitant]
     Active Substance: HYDROCHLOROTHIAZIDE\LOSARTAN POTASSIUM
     Dosage: 1 TABLET BY MOUTH DAILY
     Route: 048
  4. VERELAN [Concomitant]
     Active Substance: VERAPAMIL HYDROCHLORIDE
     Route: 048
  5. PRILOSEC [Concomitant]
     Active Substance: OMEPRAZOLE MAGNESIUM
     Route: 048
  6. ADDERALL [Concomitant]
     Active Substance: AMPHETAMINE ASPARTATE\AMPHETAMINE SULFATE\DEXTROAMPHETAMINE SACCHARATE\DEXTROAMPHETAMINE SULFATE
     Dosage: BY MOUTH DAILY
     Route: 048
  7. LYRICA [Suspect]
     Active Substance: PREGABALIN
     Route: 048
  8. REGLAN [Concomitant]
     Active Substance: METOCLOPRAMIDE HYDROCHLORIDE
  9. OXYCONTIN [Concomitant]
     Active Substance: OXYCODONE HYDROCHLORIDE
     Dosage: 1 TABLET IN THE A. M. AND 1 TABLET IN THE P. M. ABOUT 6.00 P.M.
     Route: 048
  10. LEXAPRO [Concomitant]
     Active Substance: ESCITALOPRAM OXALATE
     Route: 048
  11. FAMVIR [Concomitant]
     Active Substance: FAMCICLOVIR
     Indication: ORAL HERPES
     Dosage: 1 TABLET BY MOUTH. 4 TABLETS DAILY AS NEEDED FOR COLD SORE
     Route: 048

REACTIONS (6)
  - Pain [Unknown]
  - Vomiting [Unknown]
  - Myalgia [Unknown]
  - Oral herpes [Unknown]
  - Complex regional pain syndrome [Unknown]
  - Drug hypersensitivity [Unknown]

NARRATIVE: CASE EVENT DATE: 20120724
